FAERS Safety Report 8801049 (Version 1)
Quarter: 2012Q4

REPORT INFORMATION
  Report Type: 
  Country: CN (occurrence: CN)
  Receive Date: 20120921
  Receipt Date: 20120921
  Transmission Date: 20130627
  Serious: Yes (Death, Other)
  Sender: FDA-Public Use
  Company Number: CN-ASTELLAS-2012US007978

PATIENT
  Age: 76 None
  Sex: Male

DRUGS (2)
  1. TARCEVA [Suspect]
     Indication: NON-SMALL CELL LUNG CANCER
     Dosage: 100 mg, UID/QD
     Route: 048
     Dates: start: 2010, end: 201203
  2. TARCEVA [Suspect]
     Dosage: 150 mg, UID/QD
     Route: 048
     Dates: start: 201203, end: 20120827

REACTIONS (4)
  - Incorrect dose administered [Unknown]
  - Death [Fatal]
  - Pneumonia [Not Recovered/Not Resolved]
  - Ascites [Not Recovered/Not Resolved]
